FAERS Safety Report 5412632-2 (Version None)
Quarter: 2007Q3

REPORT INFORMATION
  Report Type: 
  Country: None (occurrence: None)
  Receive Date: 20070813
  Receipt Date: 20070809
  Transmission Date: 20080115
  Serious: Yes (Other)
  Sender: FDA-Public Use
  Company Number: US-ASTRAZENECA-2007UW19221

PATIENT
  Age: 694 Month
  Sex: Male
  Weight: 86.2 kg

DRUGS (6)
  1. TOPROL-XL [Suspect]
     Indication: HYPERTENSION
     Route: 048
     Dates: start: 20000101
  2. ALTACE [Concomitant]
  3. JANUVIA [Concomitant]
  4. PRANDIN [Concomitant]
  5. AGGRENOX [Concomitant]
  6. ASPIRIN [Concomitant]

REACTIONS (1)
  - BLOOD PRESSURE INCREASED [None]
